FAERS Safety Report 9454312 (Version 1)
Quarter: 2013Q3

REPORT INFORMATION
  Report Type: Spontaneous
  Country: US (occurrence: US)
  Receive Date: 20130812
  Receipt Date: 20130812
  Transmission Date: 20140515
  Serious: No
  Sender: FDA-Public Use
  Company Number: US-VERTEX PHARMACEUTICALS INC-2013-008612

PATIENT
  Age: 58 Year
  Sex: Female
  Weight: 64 kg

DRUGS (3)
  1. INCIVEK [Suspect]
     Indication: HEPATITIS C
     Dosage: 750 MG, TID
     Route: 048
     Dates: start: 20130723, end: 20130802
  2. RIBAVIRIN [Suspect]
     Indication: HEPATITIS C
     Dosage: 600 MG AM, 400 MG PM
     Dates: start: 20130723, end: 20130802
  3. PEGINTERFERON ALFA [Suspect]
     Indication: HEPATITIS C
     Dosage: UNK
     Dates: start: 20130723, end: 20130730

REACTIONS (9)
  - Dyspnoea [Recovered/Resolved]
  - Weight decreased [Not Recovered/Not Resolved]
  - Back pain [Not Recovered/Not Resolved]
  - Injection site pain [Recovered/Resolved]
  - Blister [Recovered/Resolved]
  - Injection site rash [Recovered/Resolved]
  - Asthenia [Not Recovered/Not Resolved]
  - Fatigue [Not Recovered/Not Resolved]
  - Rash [Recovered/Resolved]
